FAERS Safety Report 7133333-9 (Version None)
Quarter: 2010Q4

REPORT INFORMATION
  Report Type: 
  Country: None (occurrence: None)
  Receive Date: 20101117
  Receipt Date: 20101103
  Transmission Date: 20110411
  Serious: Yes (Hospitalization)
  Sender: FDA-Public Use
  Company Number: KV200900453

PATIENT
  Age: 66 Year
  Sex: Female

DRUGS (5)
  1. MORPHINE SULFATE [Suspect]
     Indication: CANCER PAIN
     Dosage: 15 MG, BID, ORAL, 30 MG, BID, ORAL
     Route: 048
     Dates: start: 20081103, end: 20081109
  2. MORPHINE SULFATE [Suspect]
     Indication: CANCER PAIN
     Dosage: 15 MG, BID, ORAL, 30 MG, BID, ORAL
     Route: 048
     Dates: start: 20081109, end: 20081110
  3. ALBUTEROL /00139501/ (SALBUTAMOL) [Concomitant]
  4. SENOKOT /00142201/ (SENNA ALEXANDRINA) [Concomitant]
  5. UNSPECIFIED ACID REFLUX MEDICATION [Concomitant]

REACTIONS (17)
  - ACUTE RESPIRATORY FAILURE [None]
  - ASTHENIA [None]
  - ATRIAL FLUTTER [None]
  - BUNDLE BRANCH BLOCK RIGHT [None]
  - CATHETER SITE HAEMORRHAGE [None]
  - CHEST PAIN [None]
  - DIARRHOEA [None]
  - DYSPNOEA [None]
  - HYPOTENSION [None]
  - METABOLIC ACIDOSIS [None]
  - MYOCARDIAL INFARCTION [None]
  - OVERDOSE [None]
  - PANCYTOPENIA [None]
  - PRODUCT QUALITY ISSUE [None]
  - PYREXIA [None]
  - SINUS TACHYCARDIA [None]
  - VOMITING [None]
